FAERS Safety Report 11502854 (Version 2)
Quarter: 2018Q3

REPORT INFORMATION
  Report Type: Spontaneous
  Country: US (occurrence: US)
  Receive Date: 20150914
  Receipt Date: 20180913
  Transmission Date: 20181010
  Serious: No
  Sender: FDA-Public Use
  Company Number: US-ASTELLAS-2015US028855

PATIENT
  Age: 67 Year
  Sex: Male

DRUGS (1)
  1. XTANDI [Suspect]
     Active Substance: ENZALUTAMIDE
     Indication: PROSTATE CANCER
     Dosage: 160 MG (4X40MG), ONCE DAILY
     Route: 048
     Dates: start: 2014

REACTIONS (6)
  - Product taste abnormal [Unknown]
  - Tongue discolouration [Unknown]
  - Diarrhoea [Unknown]
  - Product quality issue [Unknown]
  - Fatigue [Unknown]
  - Glossodynia [Unknown]

NARRATIVE: CASE EVENT DATE: 201508
